FAERS Safety Report 6504074-3 (Version None)
Quarter: 2009Q4

REPORT INFORMATION
  Report Type: 
  Country: None (occurrence: None)
  Receive Date: 20091217
  Receipt Date: 20091209
  Transmission Date: 20100525
  Serious: Yes (Other)
  Sender: FDA-Public Use
  Company Number: US-PFIZER INC-2009308908

PATIENT
  Sex: Female

DRUGS (1)
  1. NEURONTIN [Suspect]
     Dosage: 400 MG, 2X/DAY

REACTIONS (2)
  - GASTROSTOMY TUBE INSERTION [None]
  - OXYGEN SATURATION DECREASED [None]
